FAERS Safety Report 12638583 (Version 2)
Quarter: 2016Q3

REPORT INFORMATION
  Report Type: Spontaneous
  Country: US (occurrence: US)
  Receive Date: 20160809
  Receipt Date: 20160824
  Transmission Date: 20161109
  Serious: Yes (Other)
  Sender: FDA-Public Use
  Company Number: US-TEVA-682651USA

PATIENT
  Sex: Female

DRUGS (4)
  1. SYNTHROID [Concomitant]
     Active Substance: LEVOTHYROXINE SODIUM
  2. AMLODIPINE [Concomitant]
     Active Substance: AMLODIPINE BESYLATE
  3. CILOSTAZOL. [Suspect]
     Active Substance: CILOSTAZOL
     Dosage: 200 MILLIGRAM DAILY;
     Route: 048
     Dates: start: 2013, end: 2013
  4. PLETAL [Suspect]
     Active Substance: CILOSTAZOL
     Dosage: 200 MILLIGRAM DAILY;
     Route: 048
     Dates: start: 2006, end: 2013

REACTIONS (4)
  - Foreign body [Unknown]
  - Drug ineffective [Unknown]
  - Oral neoplasm [Recovered/Resolved]
  - Hip fracture [Recovered/Resolved]

NARRATIVE: CASE EVENT DATE: 2010
